FAERS Safety Report 5963058-4 (Version None)
Quarter: 2008Q4

REPORT INFORMATION
  Report Type: 
  Country: None (occurrence: None)
  Receive Date: 20081124
  Receipt Date: 20081111
  Transmission Date: 20090506
  Serious: Yes (Hospitalization)
  Sender: FDA-Public Use
  Company Number: US-ROCHE-589227

PATIENT
  Sex: Female
  Weight: 78 kg

DRUGS (12)
  1. CAPECITABINE [Suspect]
     Indication: BREAST CANCER
     Dosage: INTERRUPTED ON 9 SEPTEMBER 2008, FREQUENCY: 1 IN 1 D
     Route: 048
     Dates: start: 20080430, end: 20080909
  2. FUROSEMIDE [Concomitant]
     Route: 048
  3. SPIROLACTONE [Concomitant]
     Route: 048
  4. NALOXONE [Concomitant]
     Route: 048
  5. REGULAX [Concomitant]
     Route: 048
     Dates: start: 20080402
  6. VOLTAREN [Concomitant]
     Route: 048
     Dates: start: 20080402
  7. PANTOZOL [Concomitant]
     Route: 048
     Dates: start: 20080402
  8. CIPRAMIL [Concomitant]
     Route: 048
     Dates: start: 20080402
  9. REMERGIL [Concomitant]
     Route: 048
     Dates: start: 20080402
  10. PALLADONE [Concomitant]
     Route: 048
     Dates: start: 20080402
  11. NOVALGIN [Concomitant]
     Route: 048
     Dates: start: 20080402
  12. METOCLOPRAMIDE [Concomitant]
     Route: 048
     Dates: start: 20080402

REACTIONS (1)
  - GENERAL PHYSICAL HEALTH DETERIORATION [None]
